FAERS Safety Report 15426714 (Version 1)
Quarter: 2018Q3

REPORT INFORMATION
  Report Type: Spontaneous
  Country: US (occurrence: US)
  Receive Date: 20180925
  Receipt Date: 20180925
  Transmission Date: 20181010
  Serious: No
  Sender: FDA-Public Use
  Company Number: US-BAUSCH-BL-2018-023251

PATIENT
  Sex: Male

DRUGS (2)
  1. DIAZEGEL [Suspect]
     Active Substance: DIAZEPAM
     Indication: EPILEPSY
     Route: 065
  2. DIAZEGEL [Suspect]
     Active Substance: DIAZEPAM
     Route: 065

REACTIONS (2)
  - Gastrointestinal disorder [Unknown]
  - Weight decreased [Unknown]
